APPROVED DRUG PRODUCT: NOURIANZ
Active Ingredient: ISTRADEFYLLINE
Strength: 20MG
Dosage Form/Route: TABLET;ORAL
Application: N022075 | Product #001
Applicant: KYOWA KIRIN INC
Approved: Aug 27, 2019 | RLD: Yes | RS: No | Type: RX

PATENTS:
Patent 7727993 | Expires: Jan 28, 2028
Patent 8318201 | Expires: Sep 5, 2027